FAERS Safety Report 23500820 (Version 2)
Quarter: 2024Q1

REPORT INFORMATION
  Report Type: Spontaneous
  Country: CN (occurrence: CN)
  Receive Date: 20240208
  Receipt Date: 20240219
  Transmission Date: 20240409
  Serious: Yes (Life-Threatening, Other)
  Sender: FDA-Public Use
  Company Number: CN-BAYER-2024A021884

PATIENT
  Age: 81 Year
  Sex: Male
  Weight: 56 kg

DRUGS (1)
  1. PRIMOVIST [Suspect]
     Active Substance: GADOXETATE DISODIUM
     Indication: Magnetic resonance imaging abdominal
     Dosage: 10 ML, ONCE
     Route: 040
     Dates: start: 20240202, end: 20240202

REACTIONS (8)
  - Contrast media reaction [Recovering/Resolving]
  - Pruritus [Recovering/Resolving]
  - Dizziness [Recovering/Resolving]
  - Pallor [Recovering/Resolving]
  - Unresponsive to stimuli [Recovered/Resolved]
  - Depressed level of consciousness [Recovered/Resolved]
  - Urinary incontinence [Recovering/Resolving]
  - Oxygen saturation decreased [Recovering/Resolving]

NARRATIVE: CASE EVENT DATE: 20240202
